FAERS Safety Report 6931089-3 (Version None)
Quarter: 2010Q3

REPORT INFORMATION
  Report Type: 
  Country: None (occurrence: None)
  Receive Date: 20100818
  Receipt Date: 20100810
  Transmission Date: 20110219
  Serious: Yes (Hospitalization)
  Sender: FDA-Public Use
  Company Number: NL-WYE-G06536310

PATIENT
  Age: 74 Year
  Sex: Male
  Weight: 81 kg

DRUGS (9)
  1. SIROLIMUS [Suspect]
     Indication: RENAL TRANSPLANT
     Route: 048
     Dates: start: 20091127
  2. NEXIUM [Concomitant]
     Indication: PROPHYLAXIS
     Dates: start: 20090716
  3. ARANESP [Concomitant]
     Indication: NEPHROGENIC ANAEMIA
     Dates: start: 20090921
  4. PREDNISOLONE [Suspect]
     Indication: RENAL TRANSPLANT
     Dates: start: 20090716
  5. CALCICHEW [Concomitant]
     Indication: HYPOCALCAEMIA
     Dates: start: 20090907
  6. ETALPHA [Concomitant]
     Indication: HYPOCALCAEMIA
     Dates: start: 20091014
  7. LIPITOR [Concomitant]
     Indication: HYPERCHOLESTEROLAEMIA
  8. MYCOPHENOLATE MOFETIL [Suspect]
     Indication: RENAL TRANSPLANT
     Dates: start: 20090716
  9. ASCAL [Concomitant]
     Indication: CEREBROVASCULAR ACCIDENT PROPHYLAXIS
     Dates: start: 20020101

REACTIONS (2)
  - CHRONIC SINUSITIS [None]
  - PNEUMONIA HAEMOPHILUS [None]
